FAERS Safety Report 22524933 (Version 4)
Quarter: 2023Q2

REPORT INFORMATION
  Report Type: Other
  Country: DE (occurrence: DE)
  Receive Date: 20230606
  Receipt Date: 20230626
  Transmission Date: 20230721
  Serious: Yes (Other)
  Sender: FDA-Public Use
  Company Number: DE-CELLTRION INC.-2023DE011322

PATIENT

DRUGS (3)
  1. BEVACIZUMAB [Suspect]
     Active Substance: BEVACIZUMAB
     Indication: Neovascular age-related macular degeneration
     Dosage: UNK, Q4W (RIGHT EYE), 10 TO 12 WEEKS INTERVALS)
     Dates: start: 2019
  2. LUCENTIS [Suspect]
     Active Substance: RANIBIZUMAB
     Indication: Neovascular age-related macular degeneration
     Dosage: 0.5 MG, Q4W (INJECTION RIGHT EYE)
  3. AFLIBERCEPT [Suspect]
     Active Substance: AFLIBERCEPT
     Indication: Neovascular age-related macular degeneration
     Dosage: UNK, Q4W (INJECTION (RIGHT EYE))
     Dates: start: 2019

REACTIONS (7)
  - Retinal tear [Recovered/Resolved]
  - Neovascular age-related macular degeneration [Recovered/Resolved]
  - Disease progression [Recovered/Resolved]
  - Eye oedema [Recovered/Resolved]
  - Visual impairment [Recovered/Resolved]
  - Drug ineffective [Unknown]
  - Intentional product use issue [Unknown]

NARRATIVE: CASE EVENT DATE: 20190101
